FAERS Safety Report 20351431 (Version 1)
Quarter: 2022Q1

REPORT INFORMATION
  Report Type: Spontaneous
  Country: PL (occurrence: PL)
  Receive Date: 20220119
  Receipt Date: 20220119
  Transmission Date: 20220423
  Serious: Yes (Hospitalization, Other)
  Sender: FDA-Public Use
  Company Number: PL-PFIZER INC-202200059293

PATIENT
  Age: 25 Year
  Sex: Female

DRUGS (1)
  1. DEPO-PROVERA [Suspect]
     Active Substance: MEDROXYPROGESTERONE ACETATE
     Indication: Contraception
     Dosage: UNK
     Dates: start: 2021

REACTIONS (9)
  - Fluid retention [Unknown]
  - Suicidal ideation [Unknown]
  - Loss of consciousness [Unknown]
  - Headache [Unknown]
  - Movement disorder [Unknown]
  - Toothache [Unknown]
  - Pain in jaw [Unknown]
  - Menopausal symptoms [Unknown]
  - Cerebral vasodilatation [Unknown]
